FAERS Safety Report 9195715 (Version 1)
Quarter: 2013Q1

REPORT INFORMATION
  Report Type: Spontaneous
  Country: US (occurrence: None)
  Receive Date: 20130325
  Receipt Date: 20130325
  Transmission Date: 20140127
  Serious: Yes (Other)
  Sender: FDA-Public Use
  Company Number: None

PATIENT
  Age: 66 Year
  Sex: Female
  Weight: 67.13 kg

DRUGS (3)
  1. ESCITALOPRAM OXALATE [Suspect]
     Indication: GASTROINTESTINAL VIRAL INFECTION
     Route: 048
     Dates: start: 201302
  2. ESCITALOPRAM OXALATE [Suspect]
     Indication: NEUROPATHY PERIPHERAL
     Route: 048
     Dates: start: 201302
  3. ESCITALOPRAM OXALATE [Suspect]
     Indication: PARESIS
     Route: 048
     Dates: start: 201302

REACTIONS (5)
  - Nausea [None]
  - Eructation [None]
  - Retching [None]
  - Product substitution issue [None]
  - Product quality issue [None]
